FAERS Safety Report 13704074 (Version 1)
Quarter: 2017Q2

REPORT INFORMATION
  Report Type: Spontaneous
  Country: NO (occurrence: NO)
  Receive Date: 20170629
  Receipt Date: 20170629
  Transmission Date: 20170830
  Serious: Yes (Other)
  Sender: FDA-Public Use
  Company Number: PHHY2017NO093377

PATIENT
  Age: 46 Year
  Sex: Female

DRUGS (4)
  1. OCTREOTIDE. [Suspect]
     Active Substance: OCTREOTIDE
     Indication: METASTASES TO LIVER
  2. INSULIN [Concomitant]
     Active Substance: INSULIN NOS
     Indication: TYPE 1 DIABETES MELLITUS
     Dosage: 34 IU, QD (BASAL/BOLUS REGIME)
     Route: 065
  3. OCTREOTIDE. [Suspect]
     Active Substance: OCTREOTIDE
     Indication: INSULINOMA
     Route: 065
  4. INTERFERON [Suspect]
     Active Substance: INTERFERON
     Indication: METASTASES TO LIVER
     Route: 065

REACTIONS (1)
  - Hepatotoxicity [Unknown]
